FAERS Safety Report 23002354 (Version 2)
Quarter: 2024Q1

REPORT INFORMATION
  Report Type: Spontaneous
  Country: US (occurrence: US)
  Receive Date: 20230928
  Receipt Date: 20240223
  Transmission Date: 20240410
  Serious: Yes (Hospitalization)
  Sender: FDA-Public Use
  Company Number: US-BRISTOL-MYERS SQUIBB COMPANY-2023-137909

PATIENT
  Age: 80 Year
  Sex: Female

DRUGS (2)
  1. REVLIMID [Suspect]
     Active Substance: LENALIDOMIDE
     Indication: Follicular lymphoma stage I
     Dosage: FREQUENCY: ONCE DAILY FOR 7 DAYS ON AND 7 DAYS OFF/TAKE 1 CAPSULE BY MOUTH 1 TIME A DAY FOR 7 DAYS O
     Route: 048
     Dates: start: 202209, end: 202305
  2. REVLIMID [Suspect]
     Active Substance: LENALIDOMIDE
     Indication: Lymphadenopathy

REACTIONS (5)
  - White blood cell count decreased [Unknown]
  - Ligament disorder [Unknown]
  - Off label use [Unknown]
  - Full blood count decreased [Unknown]
  - Intentional dose omission [Unknown]
